FAERS Safety Report 6219730-4 (Version None)
Quarter: 2009Q2

REPORT INFORMATION
  Report Type: 
  Country: None (occurrence: None)
  Receive Date: 20090605
  Receipt Date: 20090526
  Transmission Date: 20091009
  Serious: Yes (Hospitalization)
  Sender: FDA-Public Use
  Company Number: 1-18595295

PATIENT
  Age: 51 Year
  Sex: Male

DRUGS (5)
  1. METFORMIN HCL [Suspect]
     Indication: DIABETES MELLITUS
     Dosage: 850 MG DAILY, ORAL
     Route: 048
  2. INSULIN [Concomitant]
  3. AMLODIPINE BESYLATE [Concomitant]
  4. ASPIRIN [Concomitant]
  5. WATER-SOLUBLE VITAMIN COMPLEX [Concomitant]

REACTIONS (4)
  - CENTRAL NERVOUS SYSTEM LESION [None]
  - INTRACRANIAL PRESSURE INCREASED [None]
  - REFUSAL OF TREATMENT BY PATIENT [None]
  - TOXIC ENCEPHALOPATHY [None]
